FAERS Safety Report 6189063-3 (Version None)
Quarter: 2009Q2

REPORT INFORMATION
  Report Type: 
  Country: None (occurrence: None)
  Receive Date: 20090513
  Receipt Date: 20090506
  Transmission Date: 20091009
  Serious: Yes (Disabling)
  Sender: FDA-Public Use
  Company Number: US-ABBOTT-09P-163-0572151-00

PATIENT
  Sex: Female

DRUGS (5)
  1. SYNTHROID [Suspect]
     Indication: HYPOTHYROIDISM
     Route: 048
     Dates: start: 20070101
  2. UNKNOWN NITROGLYCERIN PILL [Concomitant]
     Indication: ANGINA PECTORIS
     Route: 048
  3. LISINOPRIL [Concomitant]
     Indication: HYPERTENSION
     Route: 048
  4. COUMADIN [Concomitant]
     Indication: COAGULOPATHY
     Route: 048
  5. COUMADIN [Concomitant]
     Route: 048

REACTIONS (6)
  - CEREBROVASCULAR ACCIDENT [None]
  - COMMUNITY ACQUIRED INFECTION [None]
  - DIARRHOEA [None]
  - GAIT DISTURBANCE [None]
  - KLEBSIELLA INFECTION [None]
  - MUSCULAR WEAKNESS [None]
